FAERS Safety Report 23210599 (Version 1)
Quarter: 2023Q4

REPORT INFORMATION
  Report Type: Report from Study
  Country: US (occurrence: US)
  Receive Date: 20231121
  Receipt Date: 20231121
  Transmission Date: 20240110
  Serious: Yes (Hospitalization, Other)
  Sender: FDA-Public Use
  Company Number: US-002147023-NVSC2023US244737

PATIENT
  Sex: Male

DRUGS (1)
  1. ENTRESTO [Suspect]
     Active Substance: SACUBITRIL\VALSARTAN
     Indication: Cardiac failure
     Dosage: UNK
     Route: 065

REACTIONS (4)
  - Road traffic accident [Recovering/Resolving]
  - Spinal fracture [Recovering/Resolving]
  - Multiple fractures [Recovering/Resolving]
  - Hypotension [Recovering/Resolving]
